FAERS Safety Report 15976070 (Version 1)
Quarter: 2019Q1

REPORT INFORMATION
  Report Type: Spontaneous
  Country: US (occurrence: US)
  Receive Date: 20190218
  Receipt Date: 20190218
  Transmission Date: 20190418
  Serious: No
  Sender: FDA-Public Use
  Company Number: US-PFIZER INC-2016297647

PATIENT
  Age: 82 Year
  Sex: Female
  Weight: 65.3 kg

DRUGS (15)
  1. MAVIK [Concomitant]
     Active Substance: TRANDOLAPRIL
     Dosage: 4 MG, DAILY
  2. IRON [Concomitant]
     Active Substance: IRON
     Dosage: 2 DF, DAILY
  3. DETROL [Suspect]
     Active Substance: TOLTERODINE TARTRATE
     Indication: URINARY TRACT DISORDER
     Dosage: 2 MG, 2X/DAY
     Route: 048
  4. ACIPHEX [Concomitant]
     Active Substance: RABEPRAZOLE SODIUM
     Dosage: 40 MG, DAILY (20 MG, TWO PER DAY)
  5. CLARINEX [Concomitant]
     Active Substance: DESLORATADINE
     Dosage: 10 MG, AS NEEDED
  6. MIACALCIN [Concomitant]
     Active Substance: CALCITONIN SALMON
     Dosage: 2 DF, DAILY (ONE SPRAY A DAY ALTERNATE LEFT AND RIGHT NOSTRIL)
     Route: 045
  7. TYLENOL WITH CODEINE [Concomitant]
     Active Substance: ACETAMINOPHEN\CODEINE PHOSPHATE
     Dosage: 30 MG, AS NEEDED
  8. MOVANTIK [Concomitant]
     Active Substance: NALOXEGOL OXALATE
     Dosage: 25 MG, 1X/DAY [ONE BEFORE BREAKFAST]
  9. DYAZIDE [Concomitant]
     Active Substance: HYDROCHLOROTHIAZIDE\TRIAMTERENE
     Dosage: 1 DF, 1X/DAY
  10. LEVOTHROID [Concomitant]
     Active Substance: LEVOTHYROXINE SODIUM
     Dosage: 125 UG, DAILY
  11. CALCIUM CITRATE/COLECALCIFEROL/MAGNESIUM/ZINC [Concomitant]
     Dosage: 2 DF, DAILY
  12. COREG [Concomitant]
     Active Substance: CARVEDILOL
     Dosage: 6.25 MG, DAILY (3.125MG, TWO A DAY)
  13. LIPITOR [Concomitant]
     Active Substance: ATORVASTATIN CALCIUM
     Dosage: 10 MG, DAILY
  14. GABAPENTIN. [Concomitant]
     Active Substance: GABAPENTIN
     Dosage: 100 MG,
  15. DETROL [Suspect]
     Active Substance: TOLTERODINE TARTRATE
     Indication: BLOOD PRESSURE ABNORMAL

REACTIONS (1)
  - Influenza [Not Recovered/Not Resolved]

NARRATIVE: CASE EVENT DATE: 20190205
